FAERS Safety Report 23112358 (Version 1)
Quarter: 2023Q4

REPORT INFORMATION
  Report Type: Report from Study
  Country: JP (occurrence: JP)
  Receive Date: 20231027
  Receipt Date: 20231027
  Transmission Date: 20240110
  Serious: Yes (Other)
  Sender: FDA-Public Use
  Company Number: JP-TAKEDA-2021TJP011634

PATIENT
  Age: 52 Year
  Sex: Female
  Weight: 41 kg

DRUGS (12)
  1. PANITUMUMAB [Suspect]
     Active Substance: PANITUMUMAB
     Indication: Adenocarcinoma of colon
     Dosage: 240 MILLIGRAM, Q2WK
     Route: 041
     Dates: start: 20210113, end: 20210310
  2. IRINOTECAN [Suspect]
     Active Substance: IRINOTECAN
     Indication: Adenocarcinoma of colon
     Dosage: 150 MILLIGRAM, Q2WEEKS
     Route: 041
     Dates: start: 20210113, end: 20210310
  3. MINOCYCLINE HYDROCHLORIDE [Concomitant]
     Active Substance: MINOCYCLINE HYDROCHLORIDE
     Indication: Prophylaxis
     Dosage: 50 MILLIGRAM, BID
     Route: 048
     Dates: start: 20210113, end: 20210407
  4. OXYCODONE HYDROCHLORIDE [Concomitant]
     Active Substance: OXYCODONE HYDROCHLORIDE
     Indication: Cancer pain
     Dosage: 10 MILLIGRAM, BID
     Route: 048
  5. LOXOPROFEN [Concomitant]
     Active Substance: LOXOPROFEN
     Indication: Cancer pain
     Dosage: 60 MILLIGRAM, TID
     Route: 048
  6. VONOPRAZAN FUMARATE [Concomitant]
     Active Substance: VONOPRAZAN FUMARATE
     Indication: Prophylaxis
     Dosage: 10 MILLIGRAM, QD
     Route: 048
  7. MAGNESIUM OXIDE [Concomitant]
     Active Substance: MAGNESIUM OXIDE
     Indication: Constipation prophylaxis
     Dosage: 330 MILLIGRAM, TID
     Route: 048
  8. HEPARINOID [Concomitant]
     Indication: Dry skin prophylaxis
     Dosage: UNK
     Route: 050
  9. ALCLOMETASONE DIPROPIONATE [Concomitant]
     Active Substance: ALCLOMETASONE DIPROPIONATE
     Indication: Rash
     Dosage: UNK
     Route: 050
  10. Myser [Concomitant]
     Indication: Rash
     Dosage: UNK
     Route: 050
  11. SENNOSIDES A AND B [Concomitant]
     Active Substance: SENNOSIDES A AND B
     Indication: Constipation
     Dosage: 12 MILLIGRAM
     Route: 048
  12. Novamin [Concomitant]
     Dosage: 1 DOSAGE FORM
     Route: 048
     Dates: start: 20210224

REACTIONS (16)
  - Adjusted calcium decreased [Recovering/Resolving]
  - Skin hyperpigmentation [Not Recovered/Not Resolved]
  - Platelet count decreased [Unknown]
  - Neutrophil count decreased [Unknown]
  - Haemoglobin decreased [Not Recovered/Not Resolved]
  - Blood magnesium decreased [Recovering/Resolving]
  - Decreased appetite [Unknown]
  - Nausea [Unknown]
  - Dermatitis acneiform [Not Recovered/Not Resolved]
  - Dry skin [Not Recovered/Not Resolved]
  - Stomatitis [Unknown]
  - Blood potassium decreased [Not Recovered/Not Resolved]
  - Blood albumin decreased [Not Recovered/Not Resolved]
  - Blood alkaline phosphatase increased [Not Recovered/Not Resolved]
  - Alanine aminotransferase increased [Unknown]
  - Aspartate aminotransferase increased [Not Recovered/Not Resolved]

NARRATIVE: CASE EVENT DATE: 20210324
